FAERS Safety Report 10646357 (Version 1)
Quarter: 2014Q4

REPORT INFORMATION
  Report Type: Spontaneous
  Country: US (occurrence: None)
  Receive Date: 20141203
  Receipt Date: 20141203
  Transmission Date: 20150529
  Serious: No
  Sender: FDA-Public Use
  Company Number: 1414USA014181

PATIENT
  Sex: Female

DRUGS (1)
  1. GRASTEK [Suspect]
     Active Substance: PHLEUM PRATENSE POLLEN
     Indication: PRODUCT USED FOR UNKNOWN INDICATION
     Dosage: 2800 BAU/FREQUENCY NOT SPECIFIED
     Route: 060
     Dates: start: 20140423, end: 20140423

REACTIONS (2)
  - Oral pruritus [None]
  - Rhinorrhoea [None]

NARRATIVE: CASE EVENT DATE: 20140423
